FAERS Safety Report 9092274 (Version 3)
Quarter: 2013Q1

REPORT INFORMATION
  Report Type: Spontaneous
  Country: JP (occurrence: JP)
  Receive Date: 20130131
  Receipt Date: 20130311
  Transmission Date: 20140127
  Serious: Yes (Other)
  Sender: FDA-Public Use
  Company Number: JP-MYLANLABS-2013S1001499

PATIENT
  Age: 71 Year
  Sex: Female

DRUGS (2)
  1. CARBOPLATIN [Suspect]
     Indication: LUNG ADENOCARCINOMA
     Route: 041
     Dates: start: 20120802, end: 20120802
  2. ALIMTA [Concomitant]
     Indication: LUNG ADENOCARCINOMA
     Route: 041
     Dates: start: 20120802, end: 20120802

REACTIONS (1)
  - Hyponatraemia [Recovered/Resolved]
